FAERS Safety Report 16040278 (Version 1)
Quarter: 2019Q1

REPORT INFORMATION
  Report Type: Report from Study
  Country: ES (occurrence: ES)
  Receive Date: 20190306
  Receipt Date: 20190306
  Transmission Date: 20190418
  Serious: Yes (Life-Threatening, Hospitalization)
  Sender: FDA-Public Use
  Company Number: ES-TEVA-2019-ES-1018924

PATIENT
  Age: 76 Year
  Sex: Male

DRUGS (5)
  1. PRAVASTATINA SODICA [Suspect]
     Active Substance: PRAVASTATIN SODIUM
     Indication: HYPERLIPIDAEMIA
     Dosage: 10 MILLIGRAM DAILY; || UNIT DOSE FREQUENCY: 10 MG-MILLIGRAMS | | DOSE PER SHOT: 10 MG-MILLIGRAMS | |
     Route: 048
     Dates: start: 2010, end: 20161115
  2. TAMSULOSINA HIDROCLORURO [Concomitant]
     Indication: BENIGN PROSTATIC HYPERPLASIA
     Dosage: .4 MILLIGRAM DAILY; || UNIT DOSE FREQUENCY: 0.4 MG-MILLIGRAMS | | DOSE PER SHOT: 0.4 MG-MILLIGRAMS |
     Route: 048
     Dates: start: 201207
  3. CARVEDILOL. [Interacting]
     Active Substance: CARVEDILOL
     Dosage: 6.25 MILLIGRAM DAILY; || DOSIS UNIDAD FRECUENCIA: 6.25 MG-MILIGRAMOS || DOSIS POR TOMA: 6.25 MG-MILI
     Route: 048
     Dates: start: 201209
  4. SINTROM [Interacting]
     Active Substance: ACENOCOUMAROL
     Indication: DEEP VEIN THROMBOSIS
     Dosage: || FREQUENCY UNIT: 1 DAY
     Route: 048
     Dates: start: 200708, end: 20161115
  5. METFORMINA [Concomitant]
     Active Substance: METFORMIN HYDROCHLORIDE
     Indication: DIABETES MELLITUS
     Dosage: 1.7 MILLIGRAM DAILY; || UNIT DOSE FREQUENCY: 1.7 MG-MILLIGRAMS | | DOSE PER SHOT: 1.7 MG-MILLIGRAMS
     Route: 048
     Dates: start: 2010

REACTIONS (2)
  - Haemorrhage intracranial [Recovering/Resolving]
  - Drug interaction [Unknown]

NARRATIVE: CASE EVENT DATE: 20161115
